FAERS Safety Report 7545098-7 (Version None)
Quarter: 2011Q2

REPORT INFORMATION
  Report Type: 
  Country: None (occurrence: None)
  Receive Date: 20110610
  Receipt Date: 20110610
  Transmission Date: 20111010
  Serious: No
  Sender: FDA-Public Use
  Company Number: None

PATIENT
  Sex: Female
  Weight: 86.1834 kg

DRUGS (2)
  1. LIPITOR [Concomitant]
  2. ZETIA [Suspect]
     Indication: LIPIDS INCREASED
     Dosage: 10MG/DAY PO
     Route: 048
     Dates: start: 20100901, end: 20110301

REACTIONS (2)
  - WAIST CIRCUMFERENCE INCREASED [None]
  - WEIGHT INCREASED [None]
